FAERS Safety Report 22032053 (Version 7)
Quarter: 2023Q2

REPORT INFORMATION
  Report Type: Report from Study
  Country: JP (occurrence: JP)
  Receive Date: 20230224
  Receipt Date: 20230627
  Transmission Date: 20230722
  Serious: Yes (Death)
  Sender: FDA-Public Use
  Company Number: JP-TAKEDA-2023TJP002344AA

PATIENT

DRUGS (11)
  1. CABOZANTINIB [Suspect]
     Active Substance: CABOZANTINIB
     Indication: Renal cancer recurrent
     Dosage: 60 MG, QD
     Route: 048
     Dates: start: 20230207, end: 20230216
  2. OPDIVO [Suspect]
     Active Substance: NIVOLUMAB
     Indication: Renal cancer recurrent
     Dosage: 240 MG
     Route: 041
     Dates: start: 20221013
  3. OPDIVO [Suspect]
     Active Substance: NIVOLUMAB
     Dosage: 480 MG
     Route: 041
     Dates: start: 20230201, end: 20230201
  4. YERVOY [Suspect]
     Active Substance: IPILIMUMAB
     Indication: Renal cancer recurrent
     Dosage: 70.2 MG
     Route: 041
     Dates: start: 20221013, end: 20230111
  5. CORTRIL [Concomitant]
     Active Substance: HYDROCORTISONE
     Dosage: 15 MG
     Route: 048
     Dates: end: 20230217
  6. LEVOTHYROXINE SODIUM [Concomitant]
     Active Substance: LEVOTHYROXINE SODIUM
     Dosage: 25 UG, QD
     Route: 048
     Dates: end: 20230217
  7. CARVEDILOL [Concomitant]
     Active Substance: CARVEDILOL
     Dosage: 10 MILLIGRAM, QD
     Route: 048
     Dates: end: 20230217
  8. ATORVASTATIN [Concomitant]
     Active Substance: ATORVASTATIN
     Dosage: 10 MILLIGRAM, QD
     Route: 048
     Dates: end: 20230217
  9. EPINASTINE HYDROCHLORIDE [Concomitant]
     Active Substance: EPINASTINE HYDROCHLORIDE
     Dosage: 20 MILLIGRAM, QD
     Route: 048
     Dates: end: 20230217
  10. NIFEDIPINE [Concomitant]
     Active Substance: NIFEDIPINE
     Dosage: 10 MILLIGRAM, QD
     Route: 048
     Dates: end: 20230217
  11. LOSARTAN POTASSIUM [Concomitant]
     Active Substance: LOSARTAN POTASSIUM
     Dosage: 50 MILLIGRAM, QD
     Route: 048
     Dates: end: 20230217

REACTIONS (4)
  - Stevens-Johnson syndrome [Fatal]
  - Toxic epidermal necrolysis [Fatal]
  - Hypopituitarism [Fatal]
  - Vomiting [Unknown]

NARRATIVE: CASE EVENT DATE: 20230216
